FAERS Safety Report 25809119 (Version 2)
Quarter: 2025Q4

REPORT INFORMATION
  Report Type: Spontaneous
  Country: JP (occurrence: JP)
  Receive Date: 20250916
  Receipt Date: 20251103
  Transmission Date: 20260118
  Serious: Yes (Disabling, Other)
  Sender: BOEHRINGER INGELHEIM
  Company Number: JP-NBI-2025-BI-094380

PATIENT
  Age: 69 Year
  Sex: Male
  Weight: 55.3 kg

DRUGS (1)
  1. OFEV [Suspect]
     Active Substance: NINTEDANIB
     Indication: Interstitial lung disease
     Dates: start: 20161117, end: 20250908

REACTIONS (6)
  - Ischaemic stroke [Unknown]
  - Cerebral arteriosclerosis [Unknown]
  - Ischaemic stroke [Recovered/Resolved with Sequelae]
  - Cerebral arteriosclerosis [Recovered/Resolved with Sequelae]
  - Brain injury [Unknown]
  - Diarrhoea [Unknown]

NARRATIVE: CASE EVENT DATE: 20250101
